FAERS Safety Report 7079928-2 (Version None)
Quarter: 2010Q4

REPORT INFORMATION
  Report Type: 
  Country: None (occurrence: None)
  Receive Date: 20101102
  Receipt Date: 20100920
  Transmission Date: 20110411
  Serious: Yes (Other)
  Sender: FDA-Public Use
  Company Number: US-BAXTER-2010BH001604

PATIENT
  Age: 37 Year
  Sex: Female
  Weight: 133 kg

DRUGS (5)
  1. HEPARIN SODIUM INJECTION [Suspect]
     Indication: PREGNANCY
     Route: 058
     Dates: start: 20070201
  2. HEPARIN SODIUM INJECTION [Suspect]
     Indication: THROMBOSIS
     Route: 058
     Dates: start: 20070201
  3. PLAQUENIL [Concomitant]
     Indication: PRODUCT USED FOR UNKNOWN INDICATION
     Route: 065
  4. PRENATAL VITAMINS [Concomitant]
     Indication: PRODUCT USED FOR UNKNOWN INDICATION
     Route: 065
  5. IRON [Concomitant]
     Indication: PRODUCT USED FOR UNKNOWN INDICATION
     Route: 065

REACTIONS (6)
  - ABDOMINAL PAIN [None]
  - CHEST PAIN [None]
  - DIARRHOEA [None]
  - GALLBLADDER OPERATION [None]
  - TACHYCARDIA [None]
  - VOMITING [None]
